FAERS Safety Report 8916245 (Version 1)
Quarter: 2012Q4

REPORT INFORMATION
  Report Type: 
  Country: CA (occurrence: CA)
  Receive Date: 20121120
  Receipt Date: 20121120
  Transmission Date: 20130627
  Serious: Yes (Hospitalization)
  Sender: FDA-Public Use
  Company Number: PHHY2012CA105030

PATIENT
  Age: 48 Year
  Sex: Male

DRUGS (3)
  1. DOXYCYCLINE [Suspect]
     Indication: Q FEVER
  2. BENZODIAZEPINES [Concomitant]
  3. TADALAFIL [Concomitant]

REACTIONS (8)
  - Venoocclusive liver disease [Recovering/Resolving]
  - Abdominal distension [Unknown]
  - Hepatomegaly [Recovered/Resolved]
  - Ascites [Recovered/Resolved]
  - Portal hypertension [Recovered/Resolved]
  - Varices oesophageal [Unknown]
  - Portal hypertensive gastropathy [Unknown]
  - Splenomegaly [Recovered/Resolved]
